FAERS Safety Report 9871529 (Version 8)
Quarter: 2015Q2

REPORT INFORMATION
  Report Type: Report from Study
  Country: US (occurrence: US)
  Receive Date: 20140205
  Receipt Date: 20150616
  Transmission Date: 20150821
  Serious: Yes (Hospitalization, Other)
  Sender: FDA-Public Use
  Company Number: US-ALEXION-A201400279

PATIENT

DRUGS (12)
  1. BUSPIRONE [Concomitant]
     Active Substance: BUSPIRONE HYDROCHLORIDE
     Indication: PRODUCT USED FOR UNKNOWN INDICATION
     Dosage: 15 MG, TID
     Route: 065
     Dates: start: 19990909
  2. SOLIRIS [Suspect]
     Active Substance: ECULIZUMAB
     Dosage: UNK, Q2W
     Route: 042
  3. COUMADIN [Concomitant]
     Active Substance: WARFARIN SODIUM
     Indication: ANTICOAGULANT THERAPY
     Dosage: 5 MG, QD
     Route: 065
     Dates: start: 20130325
  4. CLONAZEPAM. [Concomitant]
     Active Substance: CLONAZEPAM
     Indication: PRODUCT USED FOR UNKNOWN INDICATION
     Dosage: 1 MG, TID
     Route: 065
     Dates: start: 20121126
  5. RISPERIDONE. [Concomitant]
     Active Substance: RISPERIDONE
     Indication: PRODUCT USED FOR UNKNOWN INDICATION
     Dosage: 2 MG, BID
     Route: 065
     Dates: start: 20121126
  6. SOLIRIS [Suspect]
     Active Substance: ECULIZUMAB
     Indication: PAROXYSMAL NOCTURNAL HAEMOGLOBINURIA
     Dosage: 900 MG, Q2W
     Route: 042
     Dates: start: 20130121
  7. CELEXA [Concomitant]
     Active Substance: CITALOPRAM HYDROBROMIDE
     Indication: PRODUCT USED FOR UNKNOWN INDICATION
     Dosage: 20 MG, QD
     Route: 065
     Dates: start: 20121126
  8. PREDNISONE. [Concomitant]
     Active Substance: PREDNISONE
     Indication: PRODUCT USED FOR UNKNOWN INDICATION
     Dosage: 5 MG, QD
     Route: 065
     Dates: start: 20121126, end: 20130401
  9. IRON [Concomitant]
     Active Substance: IRON
     Indication: PRODUCT USED FOR UNKNOWN INDICATION
     Dosage: 18 MG, QD
     Route: 065
     Dates: start: 20121126
  10. PROTONIX [Concomitant]
     Active Substance: PANTOPRAZOLE SODIUM
     Indication: PRODUCT USED FOR UNKNOWN INDICATION
     Dosage: 40 MG, QD
     Route: 065
     Dates: start: 20121126
  11. SOLIRIS [Suspect]
     Active Substance: ECULIZUMAB
     Dosage: UNK, Q 28 DAYS
     Route: 042
  12. AMBIEN [Concomitant]
     Active Substance: ZOLPIDEM TARTRATE
     Indication: PRODUCT USED FOR UNKNOWN INDICATION
     Dosage: 5 MG, AT BEDTIME AS NEEDED
     Route: 065
     Dates: start: 20121126

REACTIONS (17)
  - Blood lactate dehydrogenase increased [Unknown]
  - Weight decreased [Unknown]
  - Haematochezia [Not Recovered/Not Resolved]
  - Full blood count decreased [Unknown]
  - Drug resistance [Unknown]
  - Mucous stools [Not Recovered/Not Resolved]
  - Neoplasm malignant [Unknown]
  - Haemoglobin decreased [Unknown]
  - Unevaluable event [Recovered/Resolved]
  - Fatigue [Recovering/Resolving]
  - Headache [Recovered/Resolved]
  - Drug ineffective [Unknown]
  - Acute leukaemia [Unknown]
  - Haemoglobin abnormal [Unknown]
  - Blood lactate dehydrogenase increased [Recovered/Resolved]
  - Back pain [Not Recovered/Not Resolved]
  - Biopsy bone marrow [Not Recovered/Not Resolved]

NARRATIVE: CASE EVENT DATE: 20130218
